FAERS Safety Report 12451412 (Version 1)
Quarter: 2016Q2

REPORT INFORMATION
  Report Type: Report from Study
  Country: CN (occurrence: CN)
  Receive Date: 20160609
  Receipt Date: 20160609
  Transmission Date: 20160815
  Serious: Yes (Other)
  Sender: FDA-Public Use
  Company Number: CN-BAYER-2016-108123

PATIENT
  Age: 39 Year
  Sex: Male

DRUGS (2)
  1. SORAFENIB [Suspect]
     Active Substance: SORAFENIB
     Indication: ACUTE MYELOID LEUKAEMIA RECURRENT
     Dosage: 400 MG, BID DAY 1-35
     Route: 048
  2. CYTARABINE. [Concomitant]
     Active Substance: CYTARABINE
     Indication: ACUTE MYELOID LEUKAEMIA RECURRENT
     Dosage: 50 MG, QD DAY 1-14
     Route: 058

REACTIONS (6)
  - Neutropenia [None]
  - Bone marrow failure [None]
  - Thrombocytopenia [None]
  - Pulmonary mycosis [None]
  - Off label use [None]
  - Agranulocytosis [None]
